FAERS Safety Report 19139271 (Version 2)
Quarter: 2021Q2

REPORT INFORMATION
  Report Type: Spontaneous
  Country: IN (occurrence: IN)
  Receive Date: 20210415
  Receipt Date: 20210630
  Transmission Date: 20210717
  Serious: Yes (Hospitalization)
  Sender: FDA-Public Use
  Company Number: IN-PFIZER INC-2021366839

PATIENT
  Age: 62 Year
  Sex: Female

DRUGS (1)
  1. PALBACE [Suspect]
     Active Substance: PALBOCICLIB
     Indication: BREAST CANCER METASTATIC
     Dosage: 125 MG, 1X/DAY
     Route: 048
     Dates: start: 20200924, end: 202104

REACTIONS (6)
  - Asthenia [Unknown]
  - Movement disorder [Unknown]
  - Feeding disorder [Unknown]
  - Blood count abnormal [Unknown]
  - Pyrexia [Unknown]
  - White blood cell count decreased [Unknown]
